FAERS Safety Report 7744601-1 (Version None)
Quarter: 2011Q3

REPORT INFORMATION
  Report Type: 
  Country: None (occurrence: None)
  Receive Date: 20110912
  Receipt Date: 20110909
  Transmission Date: 20111222
  Serious: Yes (Death)
  Sender: FDA-Public Use
  Company Number: JP-PFIZER INC-2011211548

PATIENT
  Age: 40 Year
  Sex: Female

DRUGS (5)
  1. METHOTREXATE [Concomitant]
     Dosage: UNK
  2. ZOLOFT [Suspect]
     Indication: DEPRESSION
     Dosage: UNK
     Route: 048
  3. ENBREL [Concomitant]
     Indication: RHEUMATOID ARTHRITIS
     Dosage: UNK
  4. ZYPREXA [Suspect]
     Dosage: UNK
  5. SEROQUEL [Suspect]
     Dosage: UNK

REACTIONS (1)
  - NEUROLEPTIC MALIGNANT SYNDROME [None]
